FAERS Safety Report 9315685 (Version 1)
Quarter: 2013Q2

REPORT INFORMATION
  Report Type: Spontaneous
  Country: JP (occurrence: JP)
  Receive Date: 20130529
  Receipt Date: 20130529
  Transmission Date: 20140414
  Serious: Yes (Hospitalization)
  Sender: FDA-Public Use
  Company Number: JP-ELI_LILLY_AND_COMPANY-JP201305001731

PATIENT
  Age: 88 Year
  Sex: Male

DRUGS (7)
  1. FORTEO [Suspect]
     Indication: OSTEOPOROSIS
     Dosage: 20 UG, QD
     Route: 058
     Dates: start: 20130328
  2. ARTIST [Concomitant]
     Indication: TACHYCARDIA
     Dosage: UNK
     Dates: start: 20121223, end: 20130423
  3. BEPRICOR [Concomitant]
     Indication: TACHYCARDIA
     Dosage: UNK
     Route: 048
     Dates: end: 20130423
  4. CALONAL [Concomitant]
     Indication: COMPRESSION FRACTURE
     Dosage: UNK
     Route: 048
     Dates: start: 20130226
  5. RIVOTRIL [Concomitant]
  6. MAGMITT [Concomitant]
  7. BICALUTAMIDE [Concomitant]
     Indication: PROSTATE CANCER

REACTIONS (2)
  - Loss of consciousness [Recovered/Resolved]
  - Gastrooesophageal reflux disease [Unknown]
